FAERS Safety Report 9356108 (Version 2)
Quarter: 2013Q3

REPORT INFORMATION
  Report Type: Spontaneous
  Country: GB (occurrence: GB)
  Receive Date: 20130619
  Receipt Date: 20130704
  Transmission Date: 20140515
  Serious: Yes (Other)
  Sender: FDA-Public Use
  Company Number: GB-PFIZER INC-2013179138

PATIENT
  Age: 64 Year
  Sex: Female

DRUGS (3)
  1. XALATAN [Suspect]
     Indication: OPEN ANGLE GLAUCOMA
     Dosage: UNK
     Dates: start: 2010
  2. ALPHAGAN [Suspect]
     Indication: OPEN ANGLE GLAUCOMA
     Dosage: UNK
     Dates: start: 2010
  3. COSOPT [Suspect]
     Indication: OPEN ANGLE GLAUCOMA
     Dosage: UNK
     Dates: start: 2010

REACTIONS (4)
  - Iridocyclitis [Recovered/Resolved]
  - Visual acuity reduced [Recovering/Resolving]
  - Conjunctivitis [Recovered/Resolved]
  - Blepharitis [Recovered/Resolved]
